FAERS Safety Report 6370048-9 (Version None)
Quarter: 2009Q3

REPORT INFORMATION
  Report Type: 
  Country: None (occurrence: None)
  Receive Date: 20090923
  Receipt Date: 20070509
  Transmission Date: 20100115
  Serious: Yes (Other)
  Sender: FDA-Public Use
  Company Number: US-ASTRAZENECA-2006UW21943

PATIENT
  Age: 43 Year
  Sex: Male
  Weight: 86 kg

DRUGS (12)
  1. SEROQUEL [Suspect]
     Indication: DEPRESSION
     Dosage: 25 MG-300 MG
     Route: 048
     Dates: start: 20011211
  2. SEROQUEL [Suspect]
     Indication: SLEEP DISORDER
     Dosage: 25 MG-300 MG
     Route: 048
     Dates: start: 20011211
  3. SEROQUEL [Suspect]
     Indication: INSOMNIA
     Dosage: 25 MG-300 MG
     Route: 048
     Dates: start: 20011211
  4. SEROQUEL [Suspect]
     Route: 048
     Dates: start: 20020701, end: 20050101
  5. SEROQUEL [Suspect]
     Route: 048
     Dates: start: 20020701, end: 20050101
  6. SEROQUEL [Suspect]
     Route: 048
     Dates: start: 20020701, end: 20050101
  7. SEROQUEL [Suspect]
     Route: 048
     Dates: start: 20050101
  8. SEROQUEL [Suspect]
     Route: 048
     Dates: start: 20050101
  9. SEROQUEL [Suspect]
     Route: 048
     Dates: start: 20050101
  10. NORTRYPTOLINE [Concomitant]
  11. WELLBUTRIN [Concomitant]
  12. LEXAPRO [Concomitant]
     Dosage: 10 MG-20 MG
     Route: 048
     Dates: start: 20070627

REACTIONS (7)
  - BLOOD TRIGLYCERIDES INCREASED [None]
  - DIABETES MELLITUS [None]
  - DIABETES MELLITUS INADEQUATE CONTROL [None]
  - HYPERGLYCAEMIA [None]
  - HYPERLIPIDAEMIA [None]
  - OBESITY [None]
  - TYPE 1 DIABETES MELLITUS [None]
